FAERS Safety Report 5677412-1 (Version None)
Quarter: 2008Q1

REPORT INFORMATION
  Report Type: 
  Country: None (occurrence: None)
  Receive Date: 20080318
  Receipt Date: 20080302
  Transmission Date: 20080703
  Serious: Yes (Other)
  Sender: FDA-Public Use
  Company Number: S07-GER-03298-01

PATIENT
  Age: 26 Year
  Sex: Female
  Weight: 69.5 kg

DRUGS (4)
  1. CITALOPRAM HYDROBROMIDE [Suspect]
     Dosage: 20 MG QD PO;40 MG QD PO
     Route: 048
     Dates: start: 20070418, end: 20070424
  2. CITALOPRAM HYDROBROMIDE [Suspect]
     Dosage: 20 MG QD PO;40 MG QD PO
     Route: 048
     Dates: start: 20070425
  3. FOLACID (FOLIC ACID) [Concomitant]
  4. MAGNESIUM [Concomitant]

REACTIONS (3)
  - CAESAREAN SECTION [None]
  - DRUG EXPOSURE DURING PREGNANCY [None]
  - POSTMATURE BABY [None]
